FAERS Safety Report 5177054-0 (Version None)
Quarter: 2006Q4

REPORT INFORMATION
  Report Type: 
  Country: None (occurrence: None)
  Receive Date: 20061218
  Receipt Date: 20061212
  Transmission Date: 20070319
  Serious: Yes (Hospitalization)
  Sender: FDA-Public Use
  Company Number: FR-GLAXOSMITHKLINE-B0450151A

PATIENT
  Age: 35 Year
  Sex: Female

DRUGS (2)
  1. VENTOLIN [Suspect]
     Indication: LUNG DISORDER
     Dosage: 1PUFF AS REQUIRED
     Route: 055
     Dates: start: 20061029, end: 20061102
  2. OFLOCET [Suspect]
     Indication: LUNG DISORDER
     Dosage: 400MG PER DAY
     Route: 048
     Dates: start: 20061029, end: 20061102

REACTIONS (9)
  - ANOREXIA [None]
  - CHEILITIS [None]
  - CONJUNCTIVITIS [None]
  - DEHYDRATION [None]
  - ORAL SOFT TISSUE DISORDER [None]
  - STEVENS-JOHNSON SYNDROME [None]
  - STOMATITIS [None]
  - URETHRAL DISORDER [None]
  - VAGINAL DISORDER [None]
